FAERS Safety Report 9174889 (Version 1)
Quarter: 2013Q1

REPORT INFORMATION
  Report Type: Spontaneous
  Country: JP (occurrence: None)
  Receive Date: 20130315
  Receipt Date: 20130315
  Transmission Date: 20140127
  Serious: Yes (Hospitalization)
  Sender: FDA-Public Use
  Company Number: SYM-2013-01568

PATIENT
  Age: 62 Year
  Sex: Female
  Weight: 46 kg

DRUGS (28)
  1. FLUOROURACIL [Suspect]
     Indication: COLON CANCER
     Dosage: 350 MG, DAILY, INTRAVENOUS BOLUS
     Route: 040
     Dates: start: 20100921, end: 20100921
  2. OXALIPLATIN [Suspect]
     Indication: COLON CANCER
     Dosage: 75 MG, DAILY, INTRAVENOUS DRIP
     Route: 041
     Dates: start: 20100921, end: 20100921
  3. CALCIUM LEVOFOLINATE (CALCIUM) [Concomitant]
  4. AVASTIN (BEVACIZUMAB) (BEVACIZUMAB) [Concomitant]
  5. ANTINEOPLASTIC AGENTS (ANTINEOPLASTIC AGENTS) [Concomitant]
  6. KRESTIN (POLYSACCARIDE-K) (POLYSACCHARIDE-K) [Concomitant]
  7. ZOMETA (ZOLEDRONIC ACID) (ZOLEDRONIC ACID) [Concomitant]
  8. PREDNISOLONE (PREDNISOLONE) (PREDNISOLONE) [Concomitant]
  9. EXCELASE (ENZYMES NOS ) (ENZYMES NOS) [Concomitant]
  10. MAGMITT (MAGNESIUM OXIDE) (MAGNESIUM OXIDE) [Concomitant]
  11. BIOFERMIN (BACILLUS SUBTILIS) (BACILLUS SUBTILIS) [Concomitant]
  12. PYDOXAL (PYRIDOXAL PHOSPHATE) (PYRIDOXAL PHOSPHATE) [Concomitant]
  13. FLUCONAZOLE (FLUCONAZOLE) (FLUCONAZOLE) [Concomitant]
  14. TAKEPRON (LANSOPRAZOLE) (LANSOPRAZOLE) [Concomitant]
  15. GASTROM (ECABET MONOSIDIUM) (ECABET MONOSODIUM) [Concomitant]
  16. NAIXAN (NAPROXEN SODIUM)  (NAPROXEN SODIUM) [Concomitant]
  17. BIOFERMIN R (STREPTOCOCCUS FAECALIS) (STREPTOCOCCUS FAECALIS) [Concomitant]
  18. PREDONINE (PREDNISOLONE) (PREDNISOLONE) [Concomitant]
  19. ITRIZOLE (ITRACONAZOLE) (ITRACONAZOLE) [Concomitant]
  20. CRESTOR (ROSUVASTATIN CALCIUM) (ROSUVASTATIN CALCIUM) [Concomitant]
  21. ALFACALCIDOL (ALFACALCIDOL) (ALFACALCIDOL) [Concomitant]
  22. LYRICA (PREGABALIN ) (PREGABALIN) [Concomitant]
  23. DAIO-KANZO-TO 9OTHER THERAPEUTIC PRODUCTS) (NULL) [Concomitant]
  24. DEPAS (ETIZOLAM) (ETIZOLAM) [Concomitant]
  25. POPYRON (POVIDONE-IODINE) (PROVIDONE-IODINE) [Concomitant]
  26. (FELBINAC) [Concomitant]
  27. VOLTAREN (DICLOFENAC POTASSIUM) (DICLOFENAC POTASSIUM) [Concomitant]
  28. XELODA [Concomitant]

REACTIONS (5)
  - Febrile neutropenia [None]
  - Neuropathy peripheral [None]
  - Skin disorder [None]
  - Colorectal cancer metastatic [None]
  - Malignant neoplasm progression [None]
